FAERS Safety Report 11030921 (Version 1)
Quarter: 2015Q2

REPORT INFORMATION
  Report Type: Spontaneous
  Country: US (occurrence: None)
  Receive Date: 20150414
  Receipt Date: 20150414
  Transmission Date: 20150821
  Serious: No
  Sender: FDA-Public Use
  Company Number: None

PATIENT
  Age: 51 Year
  Sex: Female

DRUGS (3)
  1. REBIF REBIDOSE [Suspect]
     Active Substance: INTERFERON BETA-1A
     Indication: MULTIPLE SCLEROSIS
     Dosage: 22 MCG, 3 X WEEK, SUBQ
     Route: 058
     Dates: start: 20120112
  2. RAPAFLO [Concomitant]
     Active Substance: SILODOSIN
  3. REBIF REBIDOSE [Suspect]
     Active Substance: INTERFERON BETA-1A
     Indication: NEOPLASM
     Dosage: 22 MCG, 3 X WEEK, SUBQ
     Route: 058
     Dates: start: 20120112

REACTIONS (2)
  - Product outer packaging issue [None]
  - Laceration [None]

NARRATIVE: CASE EVENT DATE: 20150410
